FAERS Safety Report 15374864 (Version 1)
Quarter: 2018Q3

REPORT INFORMATION
  Report Type: Spontaneous
  Country: US (occurrence: US)
  Receive Date: 20180906
  Receipt Date: 20180906
  Transmission Date: 20181010
  Serious: Yes (Other)
  Sender: FDA-Public Use
  Company Number: None

PATIENT
  Age: 79 Year
  Sex: Female
  Weight: 89.36 kg

DRUGS (1)
  1. CAPECITABINE 500MG [Suspect]
     Active Substance: CAPECITABINE
     Indication: CHOLANGIOCARCINOMA
     Dosage: ?          OTHER DOSE:3X500MG;?
     Route: 048
     Dates: start: 20180418, end: 20180905

REACTIONS (1)
  - Disease progression [None]

NARRATIVE: CASE EVENT DATE: 20180905
